FAERS Safety Report 14119977 (Version 2)
Quarter: 2017Q4

REPORT INFORMATION
  Report Type: Not Available
  Country: US (occurrence: US)
  Receive Date: 20171024
  Receipt Date: 20171026
  Transmission Date: 20180321
  Serious: No
  Sender: FDA-Public Use
  Company Number: US-NEUROCRINE BIOSCIENCES INC.-2017NBI01010

PATIENT
  Age: 46 Year
  Sex: Female

DRUGS (2)
  1. INGREZZA [Suspect]
     Active Substance: VALBENAZINE
     Indication: PRODUCT USED FOR UNKNOWN INDICATION
     Route: 048
     Dates: start: 20170825, end: 20170831
  2. INGREZZA [Suspect]
     Active Substance: VALBENAZINE
     Route: 048
     Dates: start: 20170901, end: 20170929

REACTIONS (9)
  - Decreased appetite [Unknown]
  - Nervousness [Unknown]
  - Nightmare [Unknown]
  - Feeling abnormal [Unknown]
  - Vision blurred [Unknown]
  - Nausea [Unknown]
  - Abnormal dreams [Unknown]
  - Headache [Unknown]
  - Confusional state [Not Recovered/Not Resolved]

NARRATIVE: CASE EVENT DATE: 20170904
